FAERS Safety Report 17405172 (Version 1)
Quarter: 2020Q1

REPORT INFORMATION
  Report Type: Spontaneous
  Country: US (occurrence: US)
  Receive Date: 20200212
  Receipt Date: 20200212
  Transmission Date: 20200409
  Serious: No
  Sender: FDA-Public Use
  Company Number: US-ASTRAZENECA-2020SE07324

PATIENT
  Sex: Female
  Weight: 68 kg

DRUGS (2)
  1. FASENRA [Suspect]
     Active Substance: BENRALIZUMAB
     Indication: ASTHMA
     Route: 058
     Dates: start: 2018
  2. ASTHMA MEDS [Concomitant]
     Dosage: UNKNOWN
     Route: 065

REACTIONS (1)
  - Osteoporosis [Not Recovered/Not Resolved]
